FAERS Safety Report 15612262 (Version 2)
Quarter: 2019Q1

REPORT INFORMATION
  Report Type: Spontaneous
  Country: BR (occurrence: BR)
  Receive Date: 20181113
  Receipt Date: 20190131
  Transmission Date: 20190417
  Serious: Yes (Life-Threatening, Hospitalization, Other)
  Sender: FDA-Public Use
  Company Number: BR-009507513-1811BRA003678

PATIENT
  Age: 56 Year
  Sex: Male

DRUGS (1)
  1. PEMBROLIZUMAB. [Suspect]
     Active Substance: PEMBROLIZUMAB
     Indication: LUNG ADENOCARCINOMA
     Dosage: 200 MILLIGRAM, Q3W
     Route: 042
     Dates: start: 201801, end: 2018

REACTIONS (10)
  - Cerebral artery embolism [Recovering/Resolving]
  - Colitis [Recovering/Resolving]
  - Deep vein thrombosis [Recovering/Resolving]
  - Pneumonitis [Recovering/Resolving]
  - Renal infarct [Recovering/Resolving]
  - Psoriasis [Unknown]
  - Immune-mediated adverse reaction [Recovering/Resolving]
  - Vasculitis [Recovering/Resolving]
  - Splenic infarction [Recovering/Resolving]
  - Pulmonary embolism [Recovering/Resolving]

NARRATIVE: CASE EVENT DATE: 2018
